FAERS Safety Report 9950667 (Version 1)
Quarter: 2014Q1

REPORT INFORMATION
  Report Type: Spontaneous
  Country: US (occurrence: US)
  Receive Date: 20140304
  Receipt Date: 20140304
  Transmission Date: 20141002
  Serious: No
  Sender: FDA-Public Use
  Company Number: US-BAYER-2014-031214

PATIENT
  Sex: Male

DRUGS (1)
  1. MIRENA [Suspect]
     Route: 003

REACTIONS (2)
  - Dyspareunia [None]
  - Penile pain [None]
